FAERS Safety Report 5131708-0 (Version None)
Quarter: 2006Q4

REPORT INFORMATION
  Report Type: 
  Country: None (occurrence: None)
  Receive Date: 20061020
  Receipt Date: 20060925
  Transmission Date: 20070319
  Serious: Yes (Disabling)
  Sender: FDA-Public Use
  Company Number: CA-BOEHRINGER INGELHEIM PHARMACEUTICALS, INC.-2006-CN-00507CN

PATIENT
  Sex: Male
  Weight: 42 kg

DRUGS (13)
  1. TIPRANAVIR + RITONAVIR CO-ADMIN [Suspect]
     Indication: HIV INFECTION
     Dosage: 1000MG TPV/DAY - 400MG RTV/DAY
     Route: 048
     Dates: start: 20051015
  2. COMBIVIR [Concomitant]
     Indication: HIV INFECTION
     Dosage: 150/300MG
     Route: 048
     Dates: start: 20051015
  3. FUZEON [Concomitant]
     Indication: HIV INFECTION
     Route: 058
     Dates: start: 20051015
  4. CLARITHROMYCIN [Concomitant]
     Indication: MYCOBACTERIUM AVIUM COMPLEX INFECTION
     Route: 048
     Dates: start: 20051024
  5. ETHAMBUTOL HYDROCHLORIDE [Concomitant]
     Indication: MYCOBACTERIUM AVIUM COMPLEX INFECTION
     Route: 048
     Dates: start: 20051024
  6. LACRILUBE [Concomitant]
     Indication: DRY EYE
     Dates: start: 20051001
  7. SEPTRA [Concomitant]
     Indication: ANTIFUNGAL PROPHYLAXIS
     Dosage: 800/400MG
     Route: 048
     Dates: start: 20040730
  8. ACYCLOVIR [Concomitant]
     Indication: HERPES ZOSTER
     Route: 048
     Dates: start: 20051027
  9. FLUCONAZOLE [Concomitant]
     Indication: CANDIDIASIS
     Route: 048
     Dates: start: 20051115
  10. VIROPTIC DROPS [Concomitant]
     Dosage: 1 DROP - 5 DAILY
  11. AMITRIPTYLINE HCL [Concomitant]
     Route: 048
  12. GRAVOL TAB [Concomitant]
     Indication: DIZZINESS
     Route: 048
     Dates: start: 20051121
  13. OCUFLOX [Concomitant]
     Dates: start: 20051129

REACTIONS (2)
  - BLINDNESS UNILATERAL [None]
  - RETINAL DETACHMENT [None]
